FAERS Safety Report 9338585 (Version 2)
Quarter: 2013Q2

REPORT INFORMATION
  Report Type: Spontaneous
  Country: IT (occurrence: IT)
  Receive Date: 20130610
  Receipt Date: 20130621
  Transmission Date: 20140414
  Serious: Yes (Other)
  Sender: FDA-Public Use
  Company Number: IT-AMGEN-ITASP2013040198

PATIENT
  Sex: 0

DRUGS (7)
  1. PEGFILGRASTIM [Suspect]
     Indication: METASTATIC GASTRIC CANCER
     Dosage: 6 MG, ON DAY 3
     Route: 058
  2. DOCETAXEL [Suspect]
     Indication: METASTATIC GASTRIC CANCER
     Dosage: UNK UNK, EVERY 2 WEEKS
     Route: 065
  3. CISPLATIN [Suspect]
     Indication: METASTATIC GASTRIC CANCER
     Dosage: UNK UNK, EVERY 2 WEEKS
     Route: 065
  4. FOLINIC ACID [Suspect]
     Indication: METASTATIC GASTRIC CANCER
     Dosage: UNK UNK, EVERY 2 WEEKS
     Route: 065
  5. 5-FLUOROURACIL /00098801/ [Suspect]
     Indication: METASTATIC GASTRIC CANCER
     Dosage: UNK UNK, EVERY 2 WEEKS
     Route: 065
  6. OXALIPLATIN [Suspect]
     Indication: METASTATIC GASTRIC CANCER
     Dosage: UNK UNK, EVERY 2 WEEKS
     Route: 065
  7. IRINOTECAN [Suspect]
     Indication: METASTATIC GASTRIC CANCER
     Dosage: UNK UNK, EVERY 2 WEEKS
     Route: 065

REACTIONS (4)
  - Asthenia [Unknown]
  - Neutropenia [Unknown]
  - Anaemia [Unknown]
  - Neurotoxicity [Unknown]
